FAERS Safety Report 6976421-X (Version None)
Quarter: 2010Q3

REPORT INFORMATION
  Report Type: 
  Country: None (occurrence: None)
  Receive Date: 20100910
  Receipt Date: 20100831
  Transmission Date: 20110219
  Serious: Yes (Other)
  Sender: FDA-Public Use
  Company Number: US-PFIZER INC-2010100039

PATIENT
  Sex: Female
  Weight: 82.99 kg

DRUGS (6)
  1. LYRICA [Suspect]
     Indication: FIBROMYALGIA
     Dosage: 50 MG, 2X/DAY
     Route: 048
     Dates: start: 20080821, end: 20090720
  2. LYRICA [Suspect]
     Indication: INFLAMMATION
  3. THYROID TAB [Concomitant]
     Indication: THYROID DISORDER
     Dosage: UNK
  4. PREDNISONE [Concomitant]
     Indication: FIBROMYALGIA
     Dosage: UNK
  5. PREDNISONE [Concomitant]
     Indication: ARTHRITIS
  6. ETANERCEPT [Concomitant]
     Dosage: UNK

REACTIONS (30)
  - ABNORMAL BEHAVIOUR [None]
  - ANXIETY [None]
  - ARTHRALGIA [None]
  - ARTHROPATHY [None]
  - BACK INJURY [None]
  - CONVULSION [None]
  - DEPRESSION [None]
  - DYSPNOEA [None]
  - FATIGUE [None]
  - FEAR [None]
  - FEELING ABNORMAL [None]
  - FIBROMYALGIA [None]
  - INFLAMMATION [None]
  - IRRITABILITY [None]
  - JOINT SWELLING [None]
  - MOOD ALTERED [None]
  - MYALGIA [None]
  - NODULE [None]
  - OEDEMA PERIPHERAL [None]
  - PAIN IN EXTREMITY [None]
  - PARAESTHESIA [None]
  - RHEUMATOID NODULE [None]
  - ROAD TRAFFIC ACCIDENT [None]
  - SEDATION [None]
  - SENSORY DISTURBANCE [None]
  - SLEEP DISORDER [None]
  - SOMNOLENCE [None]
  - STRESS [None]
  - SWELLING [None]
  - VISION BLURRED [None]
